FAERS Safety Report 19521316 (Version 4)
Quarter: 2021Q4

REPORT INFORMATION
  Report Type: Spontaneous
  Country: US (occurrence: US)
  Receive Date: 20210712
  Receipt Date: 20211029
  Transmission Date: 20220304
  Serious: Yes (Other)
  Sender: FDA-Public Use
  Company Number: US-NOVARTISPH-NVSC2021US150036

PATIENT
  Age: 83 Year
  Sex: Female

DRUGS (2)
  1. PROMACTA [Suspect]
     Active Substance: ELTROMBOPAG OLAMINE
     Indication: Chronic myeloid leukaemia
     Dosage: 75 MG, BID
     Route: 048
     Dates: start: 20210423
  2. PROMACTA [Suspect]
     Active Substance: ELTROMBOPAG OLAMINE
     Indication: Thrombocytopenia
     Dosage: 150 MG, BID
     Route: 048
     Dates: start: 202012, end: 202109

REACTIONS (4)
  - Myelofibrosis [Unknown]
  - Headache [Unknown]
  - Product use in unapproved indication [Unknown]
  - Illness [Unknown]

NARRATIVE: CASE EVENT DATE: 20210901
